FAERS Safety Report 7423172-3 (Version None)
Quarter: 2011Q2

REPORT INFORMATION
  Report Type: 
  Country: None (occurrence: None)
  Receive Date: 20110419
  Receipt Date: 20070424
  Transmission Date: 20111010
  Serious: Yes (Death, Hospitalization, Other)
  Sender: FDA-Public Use
  Company Number: US-BAYER-200711305BWH

PATIENT
  Sex: Male
  Weight: 90.703 kg

DRUGS (30)
  1. DIGOXIN [Concomitant]
     Dosage: IV TO ORAL
     Dates: start: 20030806
  2. SPIRONOLACTONE [Concomitant]
     Dosage: EVERY MORNING
     Route: 048
  3. CAPOTEN [Concomitant]
  4. ZOLOFT [Concomitant]
     Dosage: 25 MG, QD
     Route: 048
     Dates: start: 20030813
  5. LEVAQUIN [Concomitant]
     Dosage: IV TO ORAL
     Dates: start: 20030920
  6. LISINOPRIL [Concomitant]
     Dosage: 20 MG, QD
     Route: 048
     Dates: start: 20030924
  7. RED BLOOD CELLS [Concomitant]
  8. TRASYLOL [Suspect]
     Indication: CORONARY ARTERY BYPASS
  9. PRINZIDE [Concomitant]
     Route: 048
  10. TOPROL-XL [Concomitant]
  11. BACTRIM [Concomitant]
     Dosage: 1 TABLET TWICE DAILY FOR 7 DAYS
     Route: 048
     Dates: start: 20030926
  12. MANNITOL [Concomitant]
     Dosage: 37.5 G, UNK
     Dates: start: 20031003
  13. ZINACEF [Concomitant]
     Dosage: 1.5 GRAMS
     Route: 042
     Dates: start: 20031003
  14. ACETYLSALICYLIC ACID SRT [Concomitant]
     Dosage: 162 MG, QD
     Route: 048
  15. NADOLOL [Concomitant]
     Dosage: 20 MG, BID
     Route: 048
  16. LOVENOX [Concomitant]
     Dosage: 40 MG EVERY 12 HOURS
     Route: 058
     Dates: start: 20030808, end: 20030812
  17. TRASYLOL [Suspect]
     Indication: POSTOPERATIVE CARE
     Dosage: 200 ML PRIME
     Dates: start: 20031003
  18. ZYPREXA [Concomitant]
     Dosage: 5 MG, BID
     Route: 048
  19. COUMADIN [Concomitant]
     Route: 048
  20. SANDOSTATIN [Concomitant]
     Dosage: 40 MCG PER HOUR
     Route: 042
     Dates: start: 20030805
  21. ZOSYN [Concomitant]
     Dosage: 3.375 G, UNK
     Route: 042
     Dates: start: 20030809, end: 20030811
  22. PROTONIX [Concomitant]
     Dosage: TWICE DAILY TO DAILY
     Route: 048
  23. ALBUTEROL INHALER [Concomitant]
     Indication: WHEEZING
     Dosage: 2 PUFFS EVERY 4 HOURS AS NEEDED
  24. ZOCOR [Concomitant]
     Dosage: EVERY MORNING
     Route: 048
  25. AUGMENTIN [Concomitant]
     Dosage: 500-125 MG TWICE DAILY
     Route: 048
     Dates: start: 20030811
  26. PREDNISONE [Concomitant]
     Dosage: 20 MG THEN10 MG
     Route: 048
     Dates: start: 20030924
  27. HEPARIN [Concomitant]
     Dosage: 10,000 UNITS PER BYPASS PUMP
     Route: 042
     Dates: start: 20031003
  28. VERSED [Concomitant]
     Dosage: UNK
     Route: 042
     Dates: start: 20031003
  29. AMIODARONE [Concomitant]
     Dosage: EVERY MORNING
     Route: 048
  30. LASIX [Concomitant]
     Dosage: 20 TO 40 MG EVERY MORNING
     Route: 048

REACTIONS (5)
  - PAIN [None]
  - DIALYSIS [None]
  - MYOCARDIAL INFARCTION [None]
  - RENAL FAILURE [None]
  - CARDIAC FAILURE [None]
